FAERS Safety Report 7292549-1 (Version None)
Quarter: 2011Q1

REPORT INFORMATION
  Report Type: 
  Country: None (occurrence: None)
  Receive Date: 20110215
  Receipt Date: 20110207
  Transmission Date: 20110831
  Serious: Yes (Other)
  Sender: FDA-Public Use
  Company Number: US-BAYER-2011-012664

PATIENT
  Sex: Female

DRUGS (1)
  1. ASPIRIN [Suspect]
     Dosage: SHE ONLY TOOK 2 OR 3 TABLETS. BOTTLE COUNT 24S.
     Route: 048

REACTIONS (2)
  - GASTRIC DISORDER [None]
  - COLITIS [None]
